FAERS Safety Report 14769124 (Version 1)
Quarter: 2018Q2

REPORT INFORMATION
  Report Type: Spontaneous
  Country: GB (occurrence: GB)
  Receive Date: 20180417
  Receipt Date: 20180417
  Transmission Date: 20180711
  Serious: Yes (Death)
  Sender: FDA-Public Use
  Company Number: GB-VIRTUS PHARMACEUTICALS, LLC-2018VTS00056

PATIENT

DRUGS (2)
  1. MULTIPLE UNSPECIFIED DRUGS [Suspect]
     Active Substance: UNSPECIFIED INGREDIENT
     Route: 048
  2. DIAZEPAM. [Suspect]
     Active Substance: DIAZEPAM
     Route: 048

REACTIONS (3)
  - Completed suicide [Fatal]
  - Death [Fatal]
  - Intentional overdose [Fatal]
